FAERS Safety Report 18650529 (Version 2)
Quarter: 2020Q4

REPORT INFORMATION
  Report Type: Report from Study
  Country: CL (occurrence: CL)
  Receive Date: 20201222
  Receipt Date: 20201224
  Transmission Date: 20210114
  Serious: Yes (Other)
  Sender: FDA-Public Use
  Company Number: CL-JNJFOC-20200909802

PATIENT
  Age: 20 Year
  Sex: Female

DRUGS (3)
  1. VENTAVIS [Suspect]
     Active Substance: ILOPROST
     Route: 055
     Dates: start: 20190805
  2. VENTAVIS [Suspect]
     Active Substance: ILOPROST
     Indication: PULMONARY HYPERTENSION
     Dosage: UNK, 6ID
     Route: 055
     Dates: end: 20200730
  3. VENTAVIS [Suspect]
     Active Substance: ILOPROST
     Dosage: UNK UNK, QID
     Route: 055
     Dates: start: 20200730

REACTIONS (14)
  - Fatigue [Recovered/Resolved]
  - Pulmonary hypertension [Recovered/Resolved]
  - Loss of consciousness [Unknown]
  - Dizziness [Recovered/Resolved with Sequelae]
  - Incorrect dose administered by device [Unknown]
  - Hypotension [Recovered/Resolved with Sequelae]
  - Syncope [Unknown]
  - Nausea [Recovered/Resolved with Sequelae]
  - Headache [Recovered/Resolved with Sequelae]
  - Hypotonia [Unknown]
  - Erythema [Recovered/Resolved with Sequelae]
  - Off label use [Unknown]
  - Seizure [Unknown]
  - Lip discolouration [Unknown]

NARRATIVE: CASE EVENT DATE: 20200720
